FAERS Safety Report 12640308 (Version 1)
Quarter: 2016Q3

REPORT INFORMATION
  Report Type: Report from Study
  Country: US (occurrence: US)
  Receive Date: 20160810
  Receipt Date: 20160810
  Transmission Date: 20161109
  Serious: Yes (Hospitalization)
  Sender: FDA-Public Use
  Company Number: US-VALIDUS PHARMACEUTICALS LLC-US-2011VAL000419

PATIENT

DRUGS (9)
  1. FERROUS SULFATE. [Concomitant]
     Active Substance: FERROUS SULFATE
     Indication: PRODUCT USED FOR UNKNOWN INDICATION
     Dosage: FORM STREGTH: 15 MG/ML (2 ML,2 IN 1 D)
     Route: 048
  2. SODIUM BICARBONATE. [Concomitant]
     Active Substance: SODIUM BICARBONATE
     Indication: PRODUCT USED FOR UNKNOWN INDICATION
     Dosage: 9 MEQ, 2 IN 1 D
     Route: 048
  3. CALCITRIOL. [Suspect]
     Active Substance: CALCITRIOL
     Indication: BONE DISORDER
     Dosage: 0.2 ?G, 1 IN 1 D
     Route: 048
  4. CALCITRIOL. [Suspect]
     Active Substance: CALCITRIOL
     Indication: MINERAL METABOLISM DISORDER
  5. NEPHRONEX [Concomitant]
     Indication: PRODUCT USED FOR UNKNOWN INDICATION
     Dosage: 1 ML, 1 IN 1 D
     Route: 048
     Dates: start: 20110725
  6. CALCITRIOL. [Suspect]
     Active Substance: CALCITRIOL
     Indication: CHRONIC KIDNEY DISEASE
     Dosage: 0.2 ?G, 1 IN 1 D
     Route: 058
  7. NEPHRONEX [Concomitant]
     Dosage: 0.5 ML, 1 IN 1 D
     Route: 048
     Dates: start: 20110725
  8. CALCIUM CARBONATE. [Concomitant]
     Active Substance: CALCIUM CARBONATE
     Indication: PRODUCT USED FOR UNKNOWN INDICATION
     Dosage: FORM STRENGTH: 100MG/ML (2 ML,3 IN 1 D)
     Route: 048
  9. PERIACTIN [Concomitant]
     Active Substance: CYPROHEPTADINE HYDROCHLORIDE
     Indication: PRODUCT USED FOR UNKNOWN INDICATION
     Dosage: FORM STRENGHT: 2 MG/5ML (0.8 ML,2 IN 1 D)
     Route: 048
     Dates: end: 20110725

REACTIONS (3)
  - Vomiting [Unknown]
  - Failure to thrive [Unknown]
  - Urinary tract infection [Unknown]

NARRATIVE: CASE EVENT DATE: 201006
